FAERS Safety Report 6181870-6 (Version None)
Quarter: 2009Q2

REPORT INFORMATION
  Report Type: 
  Country: None (occurrence: None)
  Receive Date: 20090504
  Receipt Date: 20090420
  Transmission Date: 20091009
  Serious: Yes (Disabling)
  Sender: FDA-Public Use
  Company Number: 234725

PATIENT
  Age: 59 Year
  Sex: Female

DRUGS (5)
  1. CARBOPLATIN [Suspect]
     Indication: OVARIAN CANCER
     Dosage: INTRAVENOUS
     Route: 042
     Dates: start: 20081205, end: 20090112
  2. DEXAMETHASONE 4MG TAB [Concomitant]
  3. () [Concomitant]
  4. (SALBUTAMOL) [Concomitant]
  5. (FLUTICASONE) [Concomitant]

REACTIONS (1)
  - MONONEUROPATHY MULTIPLEX [None]
